FAERS Safety Report 25845886 (Version 1)
Quarter: 2025Q3

REPORT INFORMATION
  Report Type: Spontaneous
  Country: US (occurrence: US)
  Receive Date: 20250925
  Receipt Date: 20250925
  Transmission Date: 20251021
  Serious: Yes (Other)
  Sender: RANBAXY
  Company Number: US-SUN PHARMACEUTICAL INDUSTRIES INC-2025R1-528367

PATIENT
  Age: 40 Year
  Sex: Male

DRUGS (1)
  1. LITHIUM [Suspect]
     Active Substance: LITHIUM
     Indication: Bipolar I disorder
     Dosage: 600 MILLIGRAM, BID
     Route: 065

REACTIONS (3)
  - Toxicity to various agents [Unknown]
  - Hypothyroidism [Unknown]
  - Hyperparathyroidism [Recovered/Resolved]
